FAERS Safety Report 6575344-8 (Version None)
Quarter: 2010Q1

REPORT INFORMATION
  Report Type: 
  Country: None (occurrence: None)
  Receive Date: 20100208
  Receipt Date: 20100208
  Transmission Date: 20100710
  Serious: Yes (Life-Threatening, Hospitalization)
  Sender: FDA-Public Use
  Company Number: None

PATIENT
  Age: 24 Year
  Sex: Male
  Weight: 98 kg

DRUGS (1)
  1. COPAXONE [Suspect]
     Indication: AMYOTROPHIC LATERAL SCLEROSIS
     Dosage: 40MGS DAILY SQ
     Route: 058
     Dates: start: 19850101, end: 19850101

REACTIONS (5)
  - ANAPHYLACTIC REACTION [None]
  - CONDITION AGGRAVATED [None]
  - GENERAL PHYSICAL HEALTH DETERIORATION [None]
  - INCORRECT DOSE ADMINISTERED [None]
  - PRODUCT QUALITY ISSUE [None]
